FAERS Safety Report 6761984-X (Version None)
Quarter: 2010Q2

REPORT INFORMATION
  Report Type: 
  Country: None (occurrence: None)
  Receive Date: 20100609
  Receipt Date: 20100526
  Transmission Date: 20101027
  Serious: Yes (Other)
  Sender: FDA-Public Use
  Company Number: US-ELI_LILLY_AND_COMPANY-US201005007769

PATIENT
  Sex: Female

DRUGS (11)
  1. FORTEO [Suspect]
     Indication: OSTEOPOROSIS
     Dosage: 20 UG, DAILY (1/D)
     Dates: start: 20090101
  2. PROTONIX [Concomitant]
  3. NAPRELAN [Concomitant]
     Dosage: 500 MG, DAILY (1/D)
  4. LEVOTHYROXINE SODIUM [Concomitant]
     Dosage: 150 UG, DAILY (1/D)
  5. FLUOXETINE [Concomitant]
  6. PRAVASTATIN [Concomitant]
     Dosage: 40 MG, DAILY (1/D)
  7. CITRICAL [Concomitant]
  8. CO-Q10 [Concomitant]
  9. VITAMIN B-12 [Concomitant]
  10. VALACYCLOVIR [Concomitant]
  11. LOVAZA [Concomitant]

REACTIONS (4)
  - FALL [None]
  - LEUKAEMIA [None]
  - LOWER LIMB FRACTURE [None]
  - NAUSEA [None]
